FAERS Safety Report 14446972 (Version 2)
Quarter: 2018Q1

REPORT INFORMATION
  Report Type: Report from Study
  Country: AU (occurrence: AU)
  Receive Date: 20180126
  Receipt Date: 20180213
  Transmission Date: 20180509
  Serious: Yes (Hospitalization)
  Sender: FDA-Public Use
  Company Number: PHHO2017AU017184

PATIENT
  Age: 51 Year
  Sex: Male
  Weight: 91.6 kg

DRUGS (2)
  1. AMN107 [Suspect]
     Active Substance: NILOTINIB
     Indication: CHRONIC MYELOID LEUKAEMIA
     Dosage: 600 MG
     Route: 048
     Dates: start: 20160608
  2. PEGINTERFERON ALFA-2B [Suspect]
     Active Substance: PEGINTERFERON ALFA-2B
     Indication: CHRONIC MYELOID LEUKAEMIA
     Dosage: 50 UG
     Route: 065
     Dates: start: 20160907

REACTIONS (1)
  - Retinal migraine [Recovered/Resolved]

NARRATIVE: CASE EVENT DATE: 20171220
